FAERS Safety Report 8025444-0 (Version None)
Quarter: 2012Q1

REPORT INFORMATION
  Report Type: 
  Country: None (occurrence: None)
  Receive Date: 20120105
  Receipt Date: 20111227
  Transmission Date: 20120608
  Serious: Yes (Hospitalization)
  Sender: FDA-Public Use
  Company Number: US-ELI_LILLY_AND_COMPANY-US201005001282

PATIENT
  Sex: Female

DRUGS (12)
  1. FERROUS GLUCONATE [Concomitant]
  2. FORTEO [Suspect]
     Dosage: 20 UG, QD
     Route: 065
     Dates: start: 20111101
  3. DIOVAN [Concomitant]
  4. TRAZODONE HCL [Concomitant]
  5. FORTEO [Suspect]
     Dosage: 20 UG, QD
     Route: 065
  6. DARVOCET [Concomitant]
     Indication: MUSCULOSKELETAL STIFFNESS
  7. VITAMIN D [Concomitant]
  8. OXYBUTYNIN [Concomitant]
  9. FORTEO [Suspect]
     Dosage: 20 UG, QD
     Route: 065
     Dates: end: 20110901
  10. PAROXETINE [Concomitant]
  11. FORTEO [Suspect]
     Indication: OSTEOPOROSIS
     Dosage: 20 UG, DAILY (1/D)
     Route: 065
     Dates: start: 20100406
  12. HYDROCODONE [Concomitant]

REACTIONS (10)
  - HIP FRACTURE [None]
  - DRUG EFFECT DECREASED [None]
  - DRUG INEFFECTIVE [None]
  - ARTHROPATHY [None]
  - MYALGIA [None]
  - MENTAL IMPAIRMENT [None]
  - INTENTIONAL DRUG MISUSE [None]
  - FALL [None]
  - JOINT CREPITATION [None]
  - PAIN [None]
